FAERS Safety Report 15262418 (Version 4)
Quarter: 2019Q2

REPORT INFORMATION
  Report Type: Spontaneous
  Country: US (occurrence: US)
  Receive Date: 20180809
  Receipt Date: 20190508
  Transmission Date: 20190711
  Serious: Yes (Hospitalization, Other)
  Sender: FDA-Public Use
  Company Number: US-PFIZER INC-2018318646

PATIENT
  Age: 65 Year
  Sex: Male
  Weight: 69 kg

DRUGS (2)
  1. LYRICA [Suspect]
     Active Substance: PREGABALIN
     Dosage: 20 MG, 1X/DAY
  2. LYRICA [Suspect]
     Active Substance: PREGABALIN
     Indication: NEURALGIA
     Dosage: 150 MG, 1X/DAY (AT BEDTIME)
     Dates: end: 201807

REACTIONS (12)
  - Suicidal ideation [Recovered/Resolved]
  - Weight decreased [Recovered/Resolved]
  - Intentional dose omission [Unknown]
  - Feeling cold [Recovered/Resolved]
  - Headache [Recovered/Resolved]
  - Depression [Recovered/Resolved]
  - Decreased appetite [Recovered/Resolved]
  - Anxiety [Recovered/Resolved]
  - Tremor [Recovering/Resolving]
  - Night sweats [Recovered/Resolved]
  - Disturbance in attention [Recovered/Resolved]
  - Hyperhidrosis [Recovering/Resolving]

NARRATIVE: CASE EVENT DATE: 20180628
